FAERS Safety Report 17413499 (Version 1)
Quarter: 2020Q1

REPORT INFORMATION
  Report Type: Spontaneous
  Country: DE (occurrence: DE)
  Receive Date: 20200213
  Receipt Date: 20200213
  Transmission Date: 20200409
  Serious: Yes (Other)
  Sender: FDA-Public Use
  Company Number: NVSC2020DE037196

PATIENT
  Age: 13 Year
  Sex: Female

DRUGS (1)
  1. FLUOXETIN 10 - 1 A PHARMA [Suspect]
     Active Substance: FLUOXETINE HYDROCHLORIDE
     Indication: PRODUCT USED FOR UNKNOWN INDICATION
     Dosage: 10 MG, QD
     Route: 065

REACTIONS (2)
  - Respiratory distress [Unknown]
  - Hyperventilation [Unknown]

NARRATIVE: CASE EVENT DATE: 20200201
